FAERS Safety Report 16209524 (Version 3)
Quarter: 2020Q1

REPORT INFORMATION
  Report Type: Spontaneous
  Country: US (occurrence: US)
  Receive Date: 20190417
  Receipt Date: 20200218
  Transmission Date: 20200409
  Serious: Yes (Other)
  Sender: FDA-Public Use
  Company Number: US-ALLERGAN-1916411US

PATIENT
  Sex: Female

DRUGS (1)
  1. REFRESH LIQUIGEL [Suspect]
     Active Substance: CARBOXYMETHYLCELLULOSE SODIUM
     Indication: DRY EYE
     Dosage: UNK
     Route: 047
     Dates: end: 201904

REACTIONS (3)
  - Cardiac disorder [Unknown]
  - Therapy cessation [Unknown]
  - Product container seal issue [Unknown]
